FAERS Safety Report 8061797-5 (Version None)
Quarter: 2012Q1

REPORT INFORMATION
  Report Type: 
  Country: None (occurrence: None)
  Receive Date: 20120123
  Receipt Date: 20120116
  Transmission Date: 20120608
  Serious: Yes (Hospitalization)
  Sender: FDA-Public Use
  Company Number: CA-SP-2005-01280

PATIENT
  Sex: Female

DRUGS (2)
  1. IMOGAM RABIES PASTEURIZED [Suspect]
     Indication: IMMUNISATION
     Dates: start: 20050104, end: 20050104
  2. IMOGAM RABIES PASTEURIZED [Suspect]
     Indication: IMMUNISATION
     Dates: start: 20050208, end: 20050208

REACTIONS (8)
  - NEPHROTIC SYNDROME [None]
  - VIITH NERVE PARALYSIS [None]
  - RENAL FAILURE [None]
  - NORMOCHROMIC NORMOCYTIC ANAEMIA [None]
  - EAR INFECTION [None]
  - FACE OEDEMA [None]
  - HYPERTENSION [None]
  - OEDEMA PERIPHERAL [None]
